FAERS Safety Report 25115493 (Version 1)
Quarter: 2025Q1

REPORT INFORMATION
  Report Type: Spontaneous
  Country: NP (occurrence: NP)
  Receive Date: 20250324
  Receipt Date: 20250324
  Transmission Date: 20250408
  Serious: Yes (Hospitalization, Other)
  Sender: AZURITY PHARMACEUTICALS
  Company Number: NP-AZURITY PHARMACEUTICALS, INC.-AZR202503-000792

PATIENT
  Age: 69 Year
  Sex: Male

DRUGS (3)
  1. METHOTREXATE [Suspect]
     Active Substance: METHOTREXATE
     Indication: Rheumatoid arthritis
     Dosage: 7.5 MG ORALLY ONCE WEEKLY
     Route: 048
  2. METHOTREXATE [Suspect]
     Active Substance: METHOTREXATE
     Route: 048
  3. ACECLOFENAC [Concomitant]
     Active Substance: ACECLOFENAC
     Indication: Rheumatoid arthritis
     Route: 065

REACTIONS (7)
  - Dehydration [Recovering/Resolving]
  - Myelosuppression [Recovering/Resolving]
  - Stomatitis [Recovered/Resolved]
  - Urinary tract infection [Recovering/Resolving]
  - Accidental overdose [Unknown]
  - Hypertransaminasaemia [Recovered/Resolved]
  - Inappropriate schedule of product administration [Unknown]
